FAERS Safety Report 6273290-0 (Version None)
Quarter: 2009Q3

REPORT INFORMATION
  Report Type: 
  Country: None (occurrence: None)
  Receive Date: 20090720
  Receipt Date: 20090708
  Transmission Date: 20100115
  Serious: Yes (Other)
  Sender: FDA-Public Use
  Company Number: US-ROCHE-634740

PATIENT
  Sex: Female

DRUGS (15)
  1. BONIVA [Suspect]
     Indication: OSTEOPOROSIS
     Route: 048
     Dates: start: 20050301, end: 20061215
  2. FOSAMAX [Suspect]
     Indication: OSTEOPOROSIS
     Route: 048
     Dates: start: 20010201, end: 20050308
  3. LEXAPRO [Concomitant]
     Dates: start: 20050425
  4. PREMARIN [Concomitant]
     Dates: start: 20050320
  5. ENALAPRIL MALEATE [Concomitant]
     Dates: start: 20050319
  6. BETAMETHASONE/CLOTRIMAZOLE [Concomitant]
     Dates: start: 20050329
  7. PENICILLIN VK [Concomitant]
     Dates: start: 20050922
  8. IBUPROFEN [Concomitant]
     Dates: start: 20050922
  9. ALPRAZOLAM [Concomitant]
     Dates: start: 20060106
  10. TRILYTE [Concomitant]
     Dates: start: 20060305
  11. NITROFURANTOIN MACRO [Concomitant]
     Dates: start: 20060404
  12. LEVAQUIN [Concomitant]
     Dates: start: 20060627
  13. COTRIM [Concomitant]
     Dates: start: 20060607
  14. CIPROFLOXACIN [Concomitant]
     Dates: start: 20060907
  15. CEPHALEXIN [Concomitant]
     Dates: start: 20061013

REACTIONS (8)
  - ANXIETY [None]
  - BLOOD CHOLESTEROL INCREASED [None]
  - CYSTITIS [None]
  - DENTAL CARIES [None]
  - DEPRESSION [None]
  - HYPOTHYROIDISM [None]
  - OSTEONECROSIS [None]
  - TOOTH LOSS [None]
